FAERS Safety Report 23224471 (Version 1)
Quarter: 2023Q4

REPORT INFORMATION
  Report Type: Other
  Country: US (occurrence: None)
  Receive Date: 20231124
  Receipt Date: 20231124
  Transmission Date: 20240109
  Serious: Yes (Other)
  Sender: FDA-Public Use
  Company Number: US-ROCHE-3461911

PATIENT

DRUGS (1)
  1. POLATUZUMAB VEDOTIN [Suspect]
     Active Substance: POLATUZUMAB VEDOTIN
     Indication: Product used for unknown indication
     Route: 065

REACTIONS (5)
  - Gastrointestinal toxicity [Unknown]
  - Toxicity to various agents [Unknown]
  - Pancreatic toxicity [Unknown]
  - Colitis [Unknown]
  - Gastrointestinal infection [Unknown]
